FAERS Safety Report 8059569-0 (Version None)
Quarter: 2012Q1

REPORT INFORMATION
  Report Type: 
  Country: None (occurrence: None)
  Receive Date: 20120120
  Receipt Date: 20120110
  Transmission Date: 20120608
  Serious: Yes (Hospitalization)
  Sender: FDA-Public Use
  Company Number: US-BAYER-201036144NA

PATIENT
  Age: 22 Year
  Sex: Female
  Weight: 124.72 kg

DRUGS (13)
  1. DROSPIRENONE AND ETHINYL ESTRADIOL [Suspect]
     Dosage: UNK
     Dates: start: 20091201, end: 20100101
  2. ONDANSETRON [Concomitant]
     Route: 048
  3. PRISTIQ [Concomitant]
     Dosage: 50 MG, QD
     Route: 048
  4. HYDROCODONE BITARTRATE AND ACETAMINOPHEN [Concomitant]
     Route: 048
  5. BUPROPION HYDROCHLORIDE [Concomitant]
     Route: 048
  6. YASMIN [Suspect]
  7. METHYLPREDNISOLONE [Concomitant]
     Route: 048
  8. DROSPIRENONE AND ETHINYL ESTRADIOL [Suspect]
     Dosage: UNK
     Dates: start: 20090801, end: 20090901
  9. YAZ [Suspect]
     Indication: CONTRACEPTION
     Dosage: UNK
     Dates: start: 20081101, end: 20090401
  10. ABILIFY [Concomitant]
     Route: 048
  11. TRAMADOL HCL [Concomitant]
     Route: 048
  12. TRAZODONE HCL [Concomitant]
     Route: 048
  13. DROSPIRENONE AND ETHINYL ESTRADIOL [Suspect]
     Indication: CONTRACEPTION
     Dosage: UNK
     Dates: start: 20090301, end: 20090401

REACTIONS (11)
  - DEPRESSION [None]
  - SCAR [None]
  - FLATULENCE [None]
  - MEDICAL DIET [None]
  - CONSTIPATION [None]
  - ABDOMINAL DISTENSION [None]
  - ANXIETY [None]
  - DYSPEPSIA [None]
  - DIARRHOEA [None]
  - CHOLECYSTITIS CHRONIC [None]
  - CHOLELITHIASIS [None]
